FAERS Safety Report 8562429-X (Version None)
Quarter: 2012Q3

REPORT INFORMATION
  Report Type: 
  Country: None (occurrence: None)
  Receive Date: 20120802
  Receipt Date: 20120709
  Transmission Date: 20120928
  Serious: Yes (Other)
  Sender: FDA-Public Use
  Company Number: US-AMGEN-USASP2011016592

PATIENT
  Age: 67 Year
  Sex: Female
  Weight: 70.748 kg

DRUGS (11)
  1. KLOR-CON M10 [Concomitant]
     Dosage: UNK
  2. ESTROGENS ESTERIFIED W/METHYLTESTOSTERONE [Concomitant]
     Dosage: UNK
  3. PREDNISONE [Concomitant]
     Dosage: 10 MG, UNK
     Route: 048
  4. VICODIN [Concomitant]
     Indication: RHEUMATOID ARTHRITIS
     Dosage: UNK UNK, TID
     Route: 048
     Dates: start: 20100101
  5. ENBREL [Suspect]
     Dosage: 50 MG, QWK
     Dates: start: 20091201
  6. LORTAB [Concomitant]
     Dosage: UNK
  7. PLAQUENIL [Concomitant]
     Indication: RHEUMATOID ARTHRITIS
     Dosage: 200 MG, BID
     Route: 048
     Dates: start: 20100101
  8. ENBREL [Suspect]
     Indication: RHEUMATOID ARTHRITIS
     Dosage: UNK UNK, QWK
     Route: 058
     Dates: start: 20100115
  9. ETODOLAC [Concomitant]
     Dosage: 200 MG, BID
     Route: 048
     Dates: start: 20100101
  10. NEXIUM [Concomitant]
     Dosage: UNK
  11. DIOVAN HCT [Concomitant]
     Dosage: UNK

REACTIONS (4)
  - LUPUS-LIKE SYNDROME [None]
  - MUSCLE SPASMS [None]
  - RASH [None]
  - PAIN [None]
